FAERS Safety Report 5446821-8 (Version None)
Quarter: 2007Q3

REPORT INFORMATION
  Report Type: 
  Country: None (occurrence: None)
  Receive Date: 20070802
  Receipt Date: 20060816
  Transmission Date: 20080115
  Serious: Yes (Hospitalization)
  Sender: FDA-Public Use
  Company Number: MIN-00073

PATIENT
  Age: 24 Year
  Sex: Female

DRUGS (3)
  1. MINOCYCLINE, UNK. STRENGTH AND MANUFACTURER [Suspect]
     Indication: ACNE
     Dosage: UNK. DOSE AND FREQUENCY; ORAL
     Route: 048
  2. TAZORAC CREAM (TOPICAL) [Concomitant]
  3. ALBUTEROL [Concomitant]

REACTIONS (1)
  - DRUG HYPERSENSITIVITY [None]
